FAERS Safety Report 6111023-9 (Version None)
Quarter: 2009Q1

REPORT INFORMATION
  Report Type: 
  Country: None (occurrence: None)
  Receive Date: 20090310
  Receipt Date: 20090310
  Transmission Date: 20090719
  Serious: No
  Sender: FDA-Public Use
  Company Number: None

PATIENT

DRUGS (1)
  1. ESTRACE [Suspect]
     Indication: MENOPAUSAL SYMPTOMS
     Dosage: 2 MG DAILY ORAL
     Route: 048
     Dates: start: 20060929, end: 20080521

REACTIONS (1)
  - PRURITUS [None]
